FAERS Safety Report 9940677 (Version 2)
Quarter: 2014Q1

REPORT INFORMATION
  Report Type: Spontaneous
  Country: IT (occurrence: IT)
  Receive Date: 20140303
  Receipt Date: 20140317
  Transmission Date: 20141002
  Serious: Yes (Hospitalization)
  Sender: FDA-Public Use
  Company Number: IT-TEVA-465003ISR

PATIENT
  Age: 69 Year
  Sex: Male

DRUGS (3)
  1. AMOXICILLINA ACIDO CLAVULANICO TEVA 1000 MG + 200 MG [Suspect]
     Indication: BRONCHITIS
     Dosage: 1 GRAM DAILY;
     Route: 042
     Dates: start: 20140114, end: 20140114
  2. CORDARONE 200 MG [Concomitant]
     Indication: TACHYCARDIA
     Dosage: 200 MILLIGRAM DAILY;
     Route: 048
     Dates: start: 20130101, end: 20140114
  3. CARDIOASPIRIN 100 MG [Concomitant]
     Indication: CORONARY ARTERY DISEASE
     Dosage: 100 MILLIGRAM DAILY;
     Route: 048
     Dates: start: 20130101, end: 20140114

REACTIONS (2)
  - Dyspnoea [Recovered/Resolved]
  - Nausea [Recovered/Resolved]
